FAERS Safety Report 9184784 (Version 3)
Quarter: 2014Q1

REPORT INFORMATION
  Report Type: Report from Study
  Country: US (occurrence: US)
  Receive Date: 20130325
  Receipt Date: 20140122
  Transmission Date: 20141002
  Serious: Yes (Hospitalization, Other)
  Sender: FDA-Public Use
  Company Number: US-ALEXION-A201300496

PATIENT
  Sex: Female

DRUGS (5)
  1. SOLIRIS [Suspect]
     Indication: HAEMOLYTIC URAEMIC SYNDROME
     Dosage: UNK
     Route: 042
     Dates: start: 20130222
  2. PREDNISONE [Concomitant]
     Dosage: 30 MG, BID
  3. CELLCEPT [Concomitant]
     Dosage: 500 MG, BID
  4. NORCO [Concomitant]
     Dosage: 10/325 MG, Q4HRS
  5. CIPRO [Concomitant]
     Indication: PROPHYLAXIS
     Dosage: UNK

REACTIONS (9)
  - Staphylococcal sepsis [Unknown]
  - Diplegia [Not Recovered/Not Resolved]
  - Renal impairment [Not Recovered/Not Resolved]
  - Anaemia [Not Recovered/Not Resolved]
  - Thrombocytopenia [Not Recovered/Not Resolved]
  - Ischaemia [Unknown]
  - Back pain [Unknown]
  - Muscular weakness [Unknown]
  - Fatigue [Unknown]
